FAERS Safety Report 6862711-8 (Version None)
Quarter: 2010Q3

REPORT INFORMATION
  Report Type: 
  Country: None (occurrence: None)
  Receive Date: 20100716
  Receipt Date: 20100709
  Transmission Date: 20110219
  Serious: Yes (Hospitalization)
  Sender: FDA-Public Use
  Company Number: 1000015085

PATIENT
  Age: 90 Year
  Sex: Female

DRUGS (8)
  1. NEBIVOLOL HCL [Suspect]
     Indication: HYPERTENSION
     Dosage: 5 MG (5 MG, 1 IN 1 D), ORAL
     Route: 048
     Dates: start: 20090101, end: 20100526
  2. LANOXIN [Concomitant]
     Indication: ATRIAL FIBRILLATION
     Dosage: 0.125 MG (0.125 MG, 1 IN 1 D), ORAL
     Route: 048
     Dates: start: 20090101, end: 20100526
  3. LASIX [Concomitant]
  4. TICLID [Concomitant]
  5. LASITONE [Concomitant]
  6. ZOLOFT [Concomitant]
  7. SEROQUEL [Concomitant]
  8. ARANESP [Concomitant]

REACTIONS (4)
  - BRADYARRHYTHMIA [None]
  - DRUG INTERACTION [None]
  - SYNCOPE [None]
  - THERAPEUTIC AGENT TOXICITY [None]
